FAERS Safety Report 10479692 (Version 1)
Quarter: 2014Q3

REPORT INFORMATION
  Report Type: Spontaneous
  Country: JP (occurrence: JP)
  Receive Date: 20140927
  Receipt Date: 20140927
  Transmission Date: 20150326
  Serious: Yes (Hospitalization)
  Sender: FDA-Public Use
  Company Number: PHHY2013JP158896

PATIENT
  Age: 51 Year
  Sex: Male

DRUGS (1)
  1. GLIVEC [Suspect]
     Active Substance: IMATINIB MESYLATE
     Indication: CHRONIC MYELOID LEUKAEMIA
     Dosage: 400 MG, DAILY

REACTIONS (3)
  - Anaemia [Unknown]
  - Dyspnoea exertional [Unknown]
  - Platelet count increased [Unknown]
